FAERS Safety Report 22182953 (Version 1)
Quarter: 2023Q2

REPORT INFORMATION
  Report Type: Report from Study
  Country: CO (occurrence: CO)
  Receive Date: 20230406
  Receipt Date: 20230406
  Transmission Date: 20230722
  Serious: Yes (Hospitalization)
  Sender: FDA-Public Use
  Company Number: CO-AMRYT PHARMACEUTICALS DAC-AEGR006160

PATIENT

DRUGS (3)
  1. MYALEPT [Suspect]
     Active Substance: METRELEPTIN
     Indication: Acquired generalised lipodystrophy
     Dosage: 1.7 MILLIGRAM
     Route: 058
     Dates: start: 20221111
  2. MYALEPT [Suspect]
     Active Substance: METRELEPTIN
     Dosage: 1.7 MILLIGRAM
     Route: 058
     Dates: start: 20221222
  3. MYALEPT [Suspect]
     Active Substance: METRELEPTIN
     Dosage: 1.8 MILLIGRAM
     Route: 058
     Dates: start: 20221222, end: 20230328

REACTIONS (6)
  - Gamma-glutamyltransferase increased [Not Recovered/Not Resolved]
  - Blood cholesterol increased [Not Recovered/Not Resolved]
  - Blood triglycerides abnormal [Not Recovered/Not Resolved]
  - Injection site pruritus [Recovered/Resolved]
  - Injection site erythema [Recovered/Resolved]
  - Therapy interrupted [Unknown]
